FAERS Safety Report 13256789 (Version 1)
Quarter: 2017Q1

REPORT INFORMATION
  Report Type: Spontaneous
  Country: CN (occurrence: CN)
  Receive Date: 20170221
  Receipt Date: 20170221
  Transmission Date: 20170428
  Serious: Yes (Other)
  Sender: FDA-Public Use
  Company Number: CN-ASTRAZENECA-2017SE18349

PATIENT
  Age: 12394 Day
  Sex: Female

DRUGS (10)
  1. METHYLPREDNISOLONE SODIUM SUCCINATE. [Suspect]
     Active Substance: METHYLPREDNISOLONE SODIUM SUCCINATE
     Indication: INFECTION
     Route: 041
     Dates: start: 20160311, end: 20160316
  2. METHYLPREDNISOLONE SODIUM SUCCINATE. [Suspect]
     Active Substance: METHYLPREDNISOLONE SODIUM SUCCINATE
     Indication: INFECTION
     Route: 041
     Dates: start: 20160316, end: 20160321
  3. OXIRACETAM [Concomitant]
     Active Substance: OXIRACETAM
     Indication: DRUG THERAPY
     Route: 041
     Dates: start: 20160311, end: 20160405
  4. CALCITRIOL. [Concomitant]
     Active Substance: CALCITRIOL
     Indication: VITAMIN D
     Route: 048
     Dates: start: 20160313, end: 20160406
  5. ESOMEPRAZOLE SODIUM. [Suspect]
     Active Substance: ESOMEPRAZOLE SODIUM
     Indication: PROPHYLAXIS AGAINST GASTROINTESTINAL ULCER
     Route: 042
     Dates: start: 20160313, end: 20160326
  6. GINKGO BILOBA EXTRACT [Concomitant]
     Active Substance: GINKGO
     Indication: PROMOTION OF PERIPHERAL CIRCULATION
     Route: 041
     Dates: start: 20160311, end: 20160317
  7. POTASSIUM CHLORIDE. [Concomitant]
     Active Substance: POTASSIUM CHLORIDE
     Indication: BLOOD POTASSIUM
     Route: 048
     Dates: start: 20160311, end: 20160406
  8. ESOMEPRAZOLE SODIUM. [Suspect]
     Active Substance: ESOMEPRAZOLE SODIUM
     Indication: PROPHYLAXIS AGAINST GASTROINTESTINAL ULCER
     Route: 042
     Dates: start: 20160326, end: 20160404
  9. MECOBALAMIN [Concomitant]
     Active Substance: METHYLCOBALAMIN
     Indication: NUTRITIONAL SUPPLEMENTATION
     Route: 042
     Dates: start: 20160311, end: 20160405
  10. SODIUM CHLORIDE. [Concomitant]
     Active Substance: SODIUM CHLORIDE
     Dosage: 250.0ML AS REQUIRED
     Route: 041
     Dates: start: 20160311, end: 20160321

REACTIONS (1)
  - Liver injury [Recovering/Resolving]

NARRATIVE: CASE EVENT DATE: 20160321
